FAERS Safety Report 7808851-8 (Version None)
Quarter: 2011Q4

REPORT INFORMATION
  Report Type: 
  Country: None (occurrence: None)
  Receive Date: 20111012
  Receipt Date: 20111007
  Transmission Date: 20120403
  Serious: Yes (Disabling, Other)
  Sender: FDA-Public Use
  Company Number: PHEH2010US03502

PATIENT
  Sex: Female

DRUGS (3)
  1. ZOMETA [Suspect]
     Indication: NEOPLASM MALIGNANT
     Dosage: UNK
     Dates: start: 20060601, end: 20080601
  2. PROTONIX [Concomitant]
  3. RADIATION THERAPY [Concomitant]

REACTIONS (22)
  - PAIN [None]
  - TOOTH ABSCESS [None]
  - OSTEONECROSIS OF JAW [None]
  - IMPAIRED HEALING [None]
  - ULCER [None]
  - EMOTIONAL DISTRESS [None]
  - GASTROOESOPHAGEAL REFLUX DISEASE [None]
  - KYPHOSIS [None]
  - DEFORMITY [None]
  - OSTEOSCLEROSIS [None]
  - INTERVERTEBRAL DISC DEGENERATION [None]
  - BONE LOSS [None]
  - INFECTION [None]
  - ANXIETY [None]
  - TOOTH IMPACTED [None]
  - LOOSE TOOTH [None]
  - NASAL SEPTUM DEVIATION [None]
  - DIZZINESS [None]
  - GENERAL PHYSICAL HEALTH DETERIORATION [None]
  - DENTAL CARIES [None]
  - HYPERTENSION [None]
  - SINUSITIS [None]
